FAERS Safety Report 8967639 (Version 1)
Quarter: 2012Q4

REPORT INFORMATION
  Report Type: Spontaneous
  Country: DK (occurrence: None)
  Receive Date: 20121204
  Receipt Date: 20121204
  Transmission Date: 20130627
  Serious: Yes (Life-Threatening, Disabling, Other)
  Sender: FDA-Public Use
  Company Number: 2012MA013717

PATIENT
  Age: 28 Year
  Sex: Female

DRUGS (2)
  1. CITALOPRAM HYDROBROMIDE [Suspect]
     Indication: DEPRESSION WORSENED
     Route: 048
     Dates: start: 20100710, end: 20100831
  2. AMITRIPTYLINE [Concomitant]

REACTIONS (4)
  - Dissociative disorder [None]
  - Depression [None]
  - Emotional disorder [None]
  - Hypoaesthesia [None]
